FAERS Safety Report 7602938-0 (Version None)
Quarter: 2011Q3

REPORT INFORMATION
  Report Type: 
  Country: None (occurrence: None)
  Receive Date: 20110711
  Receipt Date: 20110711
  Transmission Date: 20111222
  Serious: Yes (Life-Threatening, Hospitalization)
  Sender: FDA-Public Use
  Company Number: None

PATIENT
  Age: 51 Year
  Sex: Male
  Weight: 95.2554 kg

DRUGS (1)
  1. NAPROXEN [Suspect]
     Indication: MUSCULOSKELETAL PAIN
     Dosage: 500 MG 2X DAILY PO
     Route: 048
     Dates: start: 20110303, end: 20110428

REACTIONS (4)
  - GASTROINTESTINAL HAEMORRHAGE [None]
  - HAEMOGLOBIN DECREASED [None]
  - SYNCOPE [None]
  - GASTROINTESTINAL ULCER [None]
